FAERS Safety Report 7069695-0 (Version None)
Quarter: 2010Q4

REPORT INFORMATION
  Report Type: 
  Country: None (occurrence: None)
  Receive Date: 20101028
  Receipt Date: 20100514
  Transmission Date: 20110411
  Serious: No
  Sender: FDA-Public Use
  Company Number: US-WYE-H15295410

PATIENT
  Sex: Female

DRUGS (6)
  1. PROTONIX [Suspect]
     Indication: DYSPEPSIA
     Dosage: 40 MG AS NEEDED
  2. PROTONIX [Suspect]
     Indication: GASTROOESOPHAGEAL REFLUX DISEASE
  3. NEURONTIN [Concomitant]
  4. SOMA [Concomitant]
  5. LORTAB [Concomitant]
  6. XANAX [Concomitant]

REACTIONS (1)
  - DRUG SCREEN FALSE POSITIVE [None]
